FAERS Safety Report 8398525-X (Version None)
Quarter: 2012Q2

REPORT INFORMATION
  Report Type: 
  Country: None (occurrence: None)
  Receive Date: 20120531
  Receipt Date: 20120523
  Transmission Date: 20120825
  Serious: Yes (Hospitalization)
  Sender: FDA-Public Use
  Company Number: US-ALEXION PHARMACEUTICALS INC.-A201200942

PATIENT
  Sex: Female

DRUGS (46)
  1. JANTOVEN [Concomitant]
     Dosage: 7.5 MG, ON TUESDAY
     Route: 048
  2. AMBIEN [Concomitant]
     Indication: INSOMNIA
     Dosage: 10 MG, PRN
     Route: 048
  3. SENNA PLUS [Concomitant]
     Indication: CONSTIPATION
     Dosage: 1-2 8.6/50 MG TABLETS DAILY AS NEEDED
     Route: 048
  4. TYLENOL (CAPLET) [Concomitant]
     Dosage: 1300 MG, BID
     Route: 048
  5. ASPIRIN [Concomitant]
     Dosage: 81 MG, QOD
     Route: 048
  6. UROCIT-K [Concomitant]
     Dosage: 20 MEQ, BID
     Route: 048
  7. VITAMIN B6 [Concomitant]
     Dosage: 50 MG, QD
     Route: 048
  8. CORTEF [Concomitant]
     Dosage: 10 MG, QD IN THE MORNING
  9. RELAFEN [Concomitant]
     Dosage: 250 MG, QD
     Route: 048
  10. COLACE [Concomitant]
     Dosage: 100 MG, QD
     Route: 048
  11. KENALOG [Concomitant]
     Dosage: APPLY 2 TIMES DAILY
     Route: 061
  12. LIDOCAINE HYDROCHLORIDE [Concomitant]
     Dosage: 1 CM AS NEEDED
     Route: 061
  13. OXYCODONE HCL [Concomitant]
     Dosage: 5-10 MG EVERY 6 HOURS AS NEEDED
     Route: 048
  14. BUSPAR [Concomitant]
     Dosage: 10-20 MG BID
     Route: 048
  15. LIDODERM [Concomitant]
     Dosage: 2 PATCHES FOR 12 HOURS EVERY 24 HOURS
     Route: 061
  16. PREMARIN [Concomitant]
     Dosage: 3 TIMES PER WEEK
     Route: 067
  17. SOLIRIS [Suspect]
     Indication: PAROXYSMAL NOCTURNAL HAEMOGLOBINURIA
     Dosage: 600 MG, QW X 4 WEEKS
     Route: 042
     Dates: start: 20070821
  18. JANTOVEN [Concomitant]
     Dosage: 5 MG, QD
     Route: 048
  19. ASCORBIC ACID [Concomitant]
  20. COZAAR [Concomitant]
     Dosage: 25 MG, QD
     Route: 048
  21. CYMBALTA [Concomitant]
     Dosage: 90 MG, QD
     Route: 048
  22. SALINE [Concomitant]
     Dosage: 1-2 SPRAYS AS NEEDED
     Route: 045
  23. LASIX [Concomitant]
     Indication: ESSENTIAL HYPERTENSION
     Dosage: UNK
  24. SOLIRIS [Suspect]
     Dosage: 900 MG, Q2W
     Route: 042
     Dates: start: 20070918
  25. CORTEF [Concomitant]
     Dosage: 5 MG, QD AT NIGHT
  26. LOVAZA [Concomitant]
     Dosage: 4 G, QD
     Route: 048
  27. ACIDOPHILUS [Concomitant]
     Dosage: 1 CAPSULE QD
     Route: 048
  28. MACROBID [Concomitant]
     Indication: STRESS URINARY INCONTINENCE
     Dosage: 100 MG, QD
     Route: 048
  29. NEURONTIN [Concomitant]
     Dosage: 600 MG, BID
     Route: 048
  30. SM COMPLETE ADVANCED FORMULA [Concomitant]
     Dosage: 1 TABLET DAILY
     Route: 048
  31. VESICARE [Concomitant]
     Indication: STRESS URINARY INCONTINENCE
     Dosage: 5 MG, QD
     Route: 048
  32. PROAIR HFA [Concomitant]
     Dosage: 2 PUFFS EVERY 4 HOURS AS NEEDED
  33. MICONAZOLE [Concomitant]
     Dosage: 1 APPLICATOR 2 TIMES DAILY AS NEEDED
  34. ELAVIL [Concomitant]
     Dosage: 10 MG, QD
     Route: 048
  35. PRILOSEC [Concomitant]
     Indication: VOMITING
  36. ATARAX [Concomitant]
     Indication: PRURITUS
     Dosage: 25 MG, EVERY 8 HOURS PRN
     Route: 048
  37. PILOCARPINE HCL [Concomitant]
     Dosage: 2 TABLETS DAILY
  38. VITAMIN B-12 [Concomitant]
     Dosage: 1 TABLET DAILY
  39. CLARITIN [Concomitant]
     Dosage: 10 MG, PRN
     Route: 048
  40. FOLVITE [Concomitant]
     Dosage: 2 MG, QD
     Route: 048
  41. BENEFIBER [Concomitant]
     Dosage: 17 G, QD
     Route: 048
  42. VESICARE [Concomitant]
     Indication: URINARY TRACT INFECTION
  43. CALCIUM CITRATE W/VITAMIN D NOS [Concomitant]
     Dosage: 650/400 MG, BID
     Route: 048
  44. PRILOSEC [Concomitant]
     Indication: OESOPHAGEAL DISORDER
     Dosage: 20 MG, QD
     Route: 048
  45. FLONASE [Concomitant]
     Dosage: 200 MG, QD
     Route: 045
  46. ATENOLOL [Concomitant]
     Indication: ESSENTIAL HYPERTENSION
     Dosage: UNK

REACTIONS (2)
  - ABSCESS [None]
  - C-REACTIVE PROTEIN INCREASED [None]
